FAERS Safety Report 7161709-2 (Version None)
Quarter: 2010Q4

REPORT INFORMATION
  Report Type: 
  Country: None (occurrence: None)
  Receive Date: 20101215
  Receipt Date: 20101207
  Transmission Date: 20110411
  Serious: Yes (Hospitalization, Other)
  Sender: FDA-Public Use
  Company Number: BR-SANOFI-AVENTIS-2010SA074089

PATIENT
  Age: 0 Day
  Sex: Male
  Weight: 0.95 kg

DRUGS (2)
  1. CLEXANE [Suspect]
     Indication: THROMBOSIS
     Route: 064
     Dates: start: 20100503, end: 20100826
  2. CLEXANE [Suspect]
     Dates: start: 20100101

REACTIONS (3)
  - DRUG EXPOSURE DURING PREGNANCY [None]
  - DRUG EXPOSURE VIA BREAST MILK [None]
  - PREMATURE BABY [None]
